FAERS Safety Report 15624159 (Version 1)
Quarter: 2018Q4

REPORT INFORMATION
  Report Type: Spontaneous
  Country: FR (occurrence: FR)
  Receive Date: 20181116
  Receipt Date: 20181116
  Transmission Date: 20190205
  Serious: Yes (Life-Threatening)
  Sender: FDA-Public Use
  Company Number: FR-ROCHE-2215294

PATIENT
  Age: 48 Year
  Sex: Female

DRUGS (2)
  1. HERCEPTIN [Suspect]
     Active Substance: TRASTUZUMAB
     Indication: BREAST CANCER
     Dosage: DATE OF MOST RECENT DOSE: 18/SEP/2018
     Route: 042
     Dates: start: 201802
  2. SPIRAMYCINE [Suspect]
     Active Substance: SPIRAMYCIN
     Indication: BRONCHITIS
     Dosage: DATE OF MOST RECENT DOSE: 10/OCT/2018
     Route: 048
     Dates: start: 20171007

REACTIONS (3)
  - Vomiting [Not Recovered/Not Resolved]
  - Nausea [Not Recovered/Not Resolved]
  - Acute kidney injury [Not Recovered/Not Resolved]

NARRATIVE: CASE EVENT DATE: 20181010
